FAERS Safety Report 15263487 (Version 1)
Quarter: 2018Q3

REPORT INFORMATION
  Report Type: Report from Study
  Country: DE (occurrence: DE)
  Receive Date: 20180810
  Receipt Date: 20180810
  Transmission Date: 20181010
  Serious: Yes (Other)
  Sender: FDA-Public Use
  Company Number: DE-TEVA-2018-DE-937489

PATIENT
  Age: 50 Year
  Sex: Male
  Weight: 163 kg

DRUGS (17)
  1. PEGASYS [Suspect]
     Active Substance: PEGINTERFERON ALFA-2A
     Indication: CHRONIC HEPATITIS C
     Dosage: 180 UG, Q1WK
     Route: 058
     Dates: start: 20131118, end: 20140109
  2. IBUPROFEN. [Concomitant]
     Active Substance: IBUPROFEN
     Dosage: UNK
     Route: 065
     Dates: start: 20160613
  3. AZITHROMYCIN ANHYDROUS. [Concomitant]
     Active Substance: AZITHROMYCIN ANHYDROUS
     Dosage: UNK
     Route: 065
     Dates: start: 20150630, end: 20150715
  4. CEFUROXIM                          /00454601/ [Concomitant]
     Active Substance: CEFUROXIME
     Route: 065
  5. VIOFORMO [Concomitant]
     Dosage: UNK
     Route: 065
     Dates: start: 20160613
  6. BETAISODONA [Concomitant]
     Active Substance: POVIDONE-IODINE
     Dosage: UNK
     Route: 065
     Dates: start: 20150812, end: 20150915
  7. ROCEPHIN [Concomitant]
     Active Substance: CEFTRIAXONE SODIUM
     Dosage: UNK
     Route: 065
     Dates: start: 20170313
  8. EMTRICITABINE/RILPIVIRINE/TENOFOVIR DF [Suspect]
     Active Substance: EMTRICITABINE\RILPIVIRINE\TENOFOVIR DISOPROXIL FUMARATE
     Indication: HIV INFECTION
     Dosage: 1 DOSAGE FORMS DAILY; 200MG/25MG/245MG
     Route: 065
     Dates: start: 20131118
  9. VALTREX [Concomitant]
     Active Substance: VALACYCLOVIR HYDROCHLORIDE
     Dosage: UNK
     Route: 065
     Dates: start: 20160613
  10. INDOMET                            /00003801/ [Concomitant]
     Dosage: UNK
     Route: 065
     Dates: start: 20140820
  11. VAXIGRIP [Concomitant]
     Active Substance: INFLUENZA VIRUS VACCINE
     Dosage: UNK
     Route: 065
     Dates: start: 20151021, end: 20151021
  12. FUCICORT [Concomitant]
     Active Substance: BETAMETHASONE VALERATE\FUSIDIC ACID
     Dosage: UNK
     Route: 065
     Dates: start: 20140723
  13. TRAMAL [Concomitant]
     Active Substance: TRAMADOL
     Dosage: UNK
     Route: 065
     Dates: start: 20160613
  14. RIBAVIRIN. [Suspect]
     Active Substance: RIBAVIRIN
     Indication: CHRONIC HEPATITIS C
     Dosage: 1000 MILLIGRAM DAILY; 1000 MG, QD
     Route: 048
     Dates: start: 20131118, end: 20140109
  15. CEPHALEXIN                         /00145501/ [Concomitant]
     Active Substance: CEPHALEXIN
     Dosage: UNK
     Dates: start: 20150812, end: 20150815
  16. CEFTRIAXON [Concomitant]
     Active Substance: CEFTRIAXONE
     Dosage: UNK
     Route: 065
     Dates: start: 20150812, end: 20150815
  17. AFLURIA NOS [Concomitant]
     Active Substance: INFLUENZA VIRUS VACCINE TRIVALENT TYPE A+B AFLURIA
     Dosage: UNK
     Route: 065
     Dates: start: 20171009, end: 20171009

REACTIONS (1)
  - Haemorrhoids thrombosed [Recovered/Resolved]

NARRATIVE: CASE EVENT DATE: 20170822
